FAERS Safety Report 9201523 (Version 1)
Quarter: 2013Q2

REPORT INFORMATION
  Report Type: Spontaneous
  Country: US (occurrence: US)
  Receive Date: 20130401
  Receipt Date: 20130401
  Transmission Date: 20140414
  Serious: Yes (Other)
  Sender: FDA-Public Use
  Company Number: US-PFIZER INC-2013099013

PATIENT
  Age: 49 Year
  Sex: Male
  Weight: 136 kg

DRUGS (2)
  1. VIAGRA [Suspect]
     Indication: ERECTILE DYSFUNCTION
     Dosage: UNK
  2. ASPIRIN [Concomitant]
     Dosage: 81 MG, 1X/DAY

REACTIONS (1)
  - Apparent death [Unknown]
